FAERS Safety Report 8985208 (Version 3)
Quarter: 2013Q2

REPORT INFORMATION
  Report Type: Spontaneous
  Country: FR (occurrence: FR)
  Receive Date: 20121224
  Receipt Date: 20130425
  Transmission Date: 20140414
  Serious: Yes (Hospitalization)
  Sender: FDA-Public Use
  Company Number: FR-009507513-1212FRA008214

PATIENT
  Age: 68 Year
  Sex: Female
  Weight: 68 kg

DRUGS (9)
  1. CANCIDAS [Suspect]
     Indication: CANDIDA INFECTION
     Dosage: UNK
     Dates: start: 20121109, end: 20121116
  2. CUBICIN [Suspect]
     Dosage: UNK
     Dates: start: 20121030, end: 20121128
  3. CUBICIN [Suspect]
     Dosage: UNK
     Dates: start: 20121205, end: 20121219
  4. TAZOCILLINE [Suspect]
     Dosage: UNK
     Dates: start: 20121030, end: 20121127
  5. DALACINE [Suspect]
     Dosage: UNK
     Dates: start: 20121101, end: 20121205
  6. DALACINE [Suspect]
     Dosage: UNK
     Dates: start: 20130402
  7. AMBISOME [Suspect]
     Dosage: UNK
     Dates: start: 20121116, end: 20121129
  8. AMBISOME [Suspect]
     Dosage: UNK
     Dates: start: 20121205, end: 20121217
  9. OFLOCET (OFLOXACIN HYDROCHLORIDE) [Concomitant]
     Dosage: UNK
     Dates: start: 20121129

REACTIONS (1)
  - Dermatitis exfoliative [Recovered/Resolved]
